FAERS Safety Report 6216781-0 (Version None)
Quarter: 2009Q2

REPORT INFORMATION
  Report Type: 
  Country: None (occurrence: None)
  Receive Date: 20090603
  Receipt Date: 20090603
  Transmission Date: 20091009
  Serious: No
  Sender: FDA-Public Use
  Company Number: None

PATIENT
  Sex: Female
  Weight: 63.9572 kg

DRUGS (1)
  1. LOVASTATIN [Suspect]
     Dosage: 20 MG DAILY ORAL
     Route: 048
     Dates: start: 20090219, end: 20090417

REACTIONS (3)
  - ARTHRALGIA [None]
  - MUSCLE FATIGUE [None]
  - MYALGIA [None]
